FAERS Safety Report 20160930 (Version 1)
Quarter: 2021Q4

REPORT INFORMATION
  Report Type: Spontaneous
  Country: US (occurrence: None)
  Receive Date: 20211207
  Receipt Date: 20211207
  Transmission Date: 20220303
  Serious: Yes (Hospitalization)
  Sender: FDA-Public Use
  Company Number: None

PATIENT
  Age: 81 Year
  Sex: Male
  Weight: 110.25 kg

DRUGS (5)
  1. ELIQUIS [Suspect]
     Active Substance: APIXABAN
     Indication: Cerebrovascular accident
     Dosage: OTHER QUANTITY : 1 TABLET(S);?FREQUENCY : TWICE A DAY;?
     Route: 048
  2. LASIX [Concomitant]
     Active Substance: FUROSEMIDE
  3. DOXAZOSIN [Concomitant]
     Active Substance: DOXAZOSIN MESYLATE
  4. OXYCONTIN [Concomitant]
     Active Substance: OXYCODONE HYDROCHLORIDE
  5. TYLENOL [Concomitant]
     Active Substance: ACETAMINOPHEN

REACTIONS (6)
  - Pruritus [None]
  - Swelling face [None]
  - Swollen tongue [None]
  - Gait disturbance [None]
  - Feeling hot [None]
  - Speech disorder [None]

NARRATIVE: CASE EVENT DATE: 20210628
